FAERS Safety Report 17167027 (Version 2)
Quarter: 2020Q1

REPORT INFORMATION
  Report Type: Not Available
  Country: GB (occurrence: GB)
  Receive Date: 20191217
  Receipt Date: 20200102
  Transmission Date: 20200409
  Serious: Yes (Death, Hospitalization)
  Sender: FDA-Public Use
  Company Number: GB-LEXICON PHARMACEUTICALS, INC-19-1606-01109

PATIENT
  Age: 69 Year
  Sex: Male

DRUGS (1)
  1. XERMELO [Suspect]
     Active Substance: TELOTRISTAT ETHYL
     Indication: CARCINOID SYNDROME
     Dates: start: 2019

REACTIONS (9)
  - Neoplasm progression [Unknown]
  - Enterocutaneous fistula [Unknown]
  - Blood magnesium decreased [Unknown]
  - Cardio-respiratory arrest [Fatal]
  - Endocarditis staphylococcal [Unknown]
  - Pneumonia [Unknown]
  - Blood phosphorus decreased [Unknown]
  - Small intestinal obstruction [Unknown]
  - Blood potassium decreased [Unknown]

NARRATIVE: CASE EVENT DATE: 2019
